FAERS Safety Report 6284118-7 (Version None)
Quarter: 2009Q3

REPORT INFORMATION
  Report Type: 
  Country: None (occurrence: None)
  Receive Date: 20090722
  Receipt Date: 20090713
  Transmission Date: 20100115
  Serious: Yes (Other)
  Sender: FDA-Public Use
  Company Number: OPER20090134

PATIENT
  Sex: Male

DRUGS (2)
  1. OPANA ER [Suspect]
     Indication: PAIN
  2. HEART MEDICATIONS [Concomitant]

REACTIONS (2)
  - DRUG DEPENDENCE [None]
  - INADEQUATE ANALGESIA [None]
